FAERS Safety Report 24353575 (Version 2)
Quarter: 2024Q3

REPORT INFORMATION
  Report Type: Spontaneous
  Country: DE (occurrence: DE)
  Receive Date: 20240923
  Receipt Date: 20240930
  Transmission Date: 20241016
  Serious: Yes (Other)
  Sender: GUERBET
  Company Number: DE-GUERBET / GUERBET GMBH-DE-20240043

PATIENT
  Age: 39 Year
  Sex: Male

DRUGS (2)
  1. LIPIODOL [Suspect]
     Active Substance: ETHIODIZED OIL
     Indication: Pancreatic fistula
     Dosage: A MIXTURE OF 4 ML OF LIPIODOL WITH 1 ML OF HISTOACRYL (N-BUTYL-2-CYANOACRYLATE)
  2. HISTOACRYL [Suspect]
     Active Substance: ENBUCRILATE
     Indication: Pancreatic fistula
     Dosage: A MIXTURE OF 04 ML OF LIPIODOL WITH 01 ML OF HISTOACRYL (N-BUTYL-2-CYANOACRYLATE) AT A RATIO OF 1:4.

REACTIONS (2)
  - Pancreatitis acute [Recovered/Resolved]
  - Product use in unapproved indication [Recovered/Resolved]
